FAERS Safety Report 8556666-8 (Version None)
Quarter: 2012Q3

REPORT INFORMATION
  Report Type: 
  Country: None (occurrence: None)
  Receive Date: 20120726
  Receipt Date: 20120726
  Transmission Date: 20120928
  Serious: Yes (Other)
  Sender: FDA-Public Use
  Company Number: None

PATIENT
  Age: 51 Year
  Sex: Female

DRUGS (1)
  1. AMLODIPINE [Suspect]
     Indication: HYPERTENSION
     Dosage: 10-20MG ONCE DAILY PO
     Route: 048
     Dates: start: 20120722, end: 20120724

REACTIONS (6)
  - CHROMATURIA [None]
  - HEART RATE DECREASED [None]
  - CHILLS [None]
  - DECREASED APPETITE [None]
  - PYREXIA [None]
  - INFLUENZA LIKE ILLNESS [None]
